FAERS Safety Report 10029573 (Version 1)
Quarter: 2014Q1

REPORT INFORMATION
  Report Type: Spontaneous
  Country: US (occurrence: None)
  Receive Date: 20140320
  Receipt Date: 20140320
  Transmission Date: 20141002
  Serious: Yes (Life-Threatening)
  Sender: FDA-Public Use
  Company Number: None

PATIENT
  Age: 63 Year
  Sex: Female
  Weight: 58.06 kg

DRUGS (2)
  1. AK-FLUOR [Suspect]
     Indication: RETINAL DISORDER
     Route: 042
     Dates: start: 20140318, end: 20140318
  2. ONE A DAY FOR WOMEN [Concomitant]

REACTIONS (7)
  - Swelling face [None]
  - Throat tightness [None]
  - Tongue spasm [None]
  - Speech disorder [None]
  - Feeling cold [None]
  - Pruritus [None]
  - Anaphylactic shock [None]
